FAERS Safety Report 18047439 (Version 2)
Quarter: 2022Q1

REPORT INFORMATION
  Report Type: Spontaneous
  Country: ES (occurrence: ES)
  Receive Date: 20200721
  Receipt Date: 20220303
  Transmission Date: 20220423
  Serious: Yes (Death, Other)
  Sender: FDA-Public Use
  Company Number: ES-EMA-DD-20200710-BHARDWAJ_R-120858

PATIENT
  Age: 65 Year
  Sex: Female

DRUGS (4)
  1. ZOLEDRONIC ACID [Suspect]
     Active Substance: ZOLEDRONIC ACID
     Indication: Breast cancer metastatic
     Dosage: 4 MILLIGRAM, EVERY 3 MONTHS
     Route: 042
     Dates: start: 201407
  2. FULVESTRANT [Suspect]
     Active Substance: FULVESTRANT
     Indication: Breast cancer metastatic
     Dosage: 500 MILLIGRAM (EVERY 28 DAYS (EVERY FOUR WEEKS), AFTER LOADING DOSE)
     Route: 030
     Dates: start: 201711, end: 201909
  3. PALBOCICLIB [Suspect]
     Active Substance: PALBOCICLIB
     Indication: Breast cancer metastatic
     Dosage: 100 MILLIGRAM, ONCE A DAY
     Route: 048
     Dates: end: 201909
  4. PALBOCICLIB [Suspect]
     Active Substance: PALBOCICLIB
     Dosage: 125 MILLIGRAM (125 MG/DAY X 21 DAYS EVERY 28 DAYS)
     Route: 048
     Dates: start: 201711

REACTIONS (3)
  - Malignant neoplasm progression [Fatal]
  - Neutropenia [Fatal]
  - Asthenia [Fatal]

NARRATIVE: CASE EVENT DATE: 20190901
